FAERS Safety Report 6190085-7 (Version None)
Quarter: 2009Q2

REPORT INFORMATION
  Report Type: 
  Country: None (occurrence: None)
  Receive Date: 20090514
  Receipt Date: 20090406
  Transmission Date: 20091009
  Serious: No
  Sender: FDA-Public Use
  Company Number: US-BAYER-200911073BCC

PATIENT
  Sex: Female

DRUGS (1)
  1. ALEVE [Suspect]
     Indication: PAIN IN EXTREMITY
     Dosage: AS USED: 440 MG  UNIT DOSE: 220 MG
     Route: 048

REACTIONS (1)
  - PAIN IN EXTREMITY [None]
